FAERS Safety Report 9481881 (Version 1)
Quarter: 2013Q3

REPORT INFORMATION
  Report Type: Spontaneous
  Country: US (occurrence: US)
  Receive Date: 20130828
  Receipt Date: 20130828
  Transmission Date: 20140515
  Serious: Yes (Other)
  Sender: FDA-Public Use
  Company Number: US-JNJFOC-20130807826

PATIENT
  Age: 65 Year
  Sex: Female
  Weight: 76.66 kg

DRUGS (10)
  1. TYLENOL UNSPECIFIED [Suspect]
     Route: 065
  2. TYLENOL UNSPECIFIED [Suspect]
     Indication: PREMEDICATION
     Route: 065
     Dates: start: 20130808
  3. BENADRYL [Suspect]
     Indication: PREMEDICATION
     Route: 042
     Dates: start: 20130808, end: 20130808
  4. NORMAL SALINE [Concomitant]
     Indication: PRODUCT USED FOR UNKNOWN INDICATION
     Route: 042
  5. REMICADE [Concomitant]
     Indication: COLITIS ULCERATIVE
     Route: 065
     Dates: start: 20130502
  6. REMICADE [Concomitant]
     Indication: COLITIS ULCERATIVE
     Dosage: 80 ML/HR
     Route: 065
     Dates: start: 20130808
  7. REMICADE [Concomitant]
     Indication: COLITIS ULCERATIVE
     Route: 065
     Dates: start: 20130402
  8. REMICADE [Concomitant]
     Indication: COLITIS ULCERATIVE
     Route: 065
     Dates: start: 20130319, end: 20130322
  9. SOLUCORTEF [Concomitant]
     Indication: PREMEDICATION
     Route: 042
     Dates: start: 20130808, end: 20130808
  10. IRON [Concomitant]
     Indication: ANAEMIA
     Route: 042
     Dates: start: 20130501

REACTIONS (5)
  - Chest pain [Recovered/Resolved]
  - Tremor [Not Recovered/Not Resolved]
  - Blood pressure increased [Recovered/Resolved]
  - Oxygen saturation decreased [Recovered/Resolved]
  - Erythema [Recovered/Resolved]
